FAERS Safety Report 5575628-6 (Version None)
Quarter: 2007Q4

REPORT INFORMATION
  Report Type: 
  Country: None (occurrence: None)
  Receive Date: 20071226
  Receipt Date: 20071217
  Transmission Date: 20080405
  Serious: Yes (Hospitalization)
  Sender: FDA-Public Use
  Company Number: DSU-2007-01005

PATIENT
  Age: 66 Year
  Sex: Female

DRUGS (2)
  1. BENICAR [Suspect]
     Indication: DRUG USE FOR UNKNOWN INDICATION
     Dosage: PER ORAL
     Route: 048
     Dates: start: 20070101
  2. DIOVAN [Concomitant]

REACTIONS (7)
  - ANXIETY [None]
  - DYSPNOEA [None]
  - HEART RATE INCREASED [None]
  - HYPERSENSITIVITY [None]
  - LIP SWELLING [None]
  - RESPIRATORY RATE INCREASED [None]
  - SWOLLEN TONGUE [None]
